FAERS Safety Report 13641465 (Version 1)
Quarter: 2017Q2

REPORT INFORMATION
  Report Type: Spontaneous
  Country: US (occurrence: US)
  Receive Date: 20170610
  Receipt Date: 20170610
  Transmission Date: 20170830
  Serious: Yes (Hospitalization)
  Sender: FDA-Public Use
  Company Number: None

PATIENT
  Age: 69 Year
  Sex: Female
  Weight: 53.1 kg

DRUGS (5)
  1. TRADER JOE^S VITAMIND D [Concomitant]
  2. ANASTROZOLE 1MG TABLETS [Suspect]
     Active Substance: ANASTROZOLE
     Indication: OESTROGEN RECEPTOR POSITIVE BREAST CANCER
     Dosage: ?          QUANTITY:90 TABLET(S);?
     Route: 048
     Dates: start: 20121020, end: 20121215
  3. CENTRUM SILVER MULTI-VITAMIN [Concomitant]
  4. COLD-EZE [Concomitant]
  5. DECAFFEINATED GREEN TEA [Concomitant]

REACTIONS (11)
  - Dyspnoea [None]
  - Palpitations [None]
  - Blood pressure increased [None]
  - Product formulation issue [None]
  - Product substitution issue [None]
  - Dizziness [None]
  - Asthenia [None]
  - Neoplasm recurrence [None]
  - Lymphoma [None]
  - Abasia [None]
  - Dysstasia [None]

NARRATIVE: CASE EVENT DATE: 20121104
